FAERS Safety Report 10913898 (Version 1)
Quarter: 2015Q1

REPORT INFORMATION
  Report Type: Spontaneous
  Country: US (occurrence: US)
  Receive Date: 20150313
  Receipt Date: 20150313
  Transmission Date: 20150721
  Serious: Yes (Other)
  Sender: FDA-Public Use
  Company Number: US-ELI_LILLY_AND_COMPANY-US201503000504

PATIENT
  Sex: Female

DRUGS (2)
  1. CYMBALTA [Suspect]
     Active Substance: DULOXETINE HYDROCHLORIDE
     Indication: PAIN IN EXTREMITY
  2. CYMBALTA [Suspect]
     Active Substance: DULOXETINE HYDROCHLORIDE
     Indication: NEUROPATHY PERIPHERAL
     Dosage: UNK
     Route: 065
     Dates: start: 20130128, end: 20130916

REACTIONS (8)
  - Drug withdrawal syndrome [Unknown]
  - Vomiting [Unknown]
  - Mood swings [Unknown]
  - Dizziness [Unknown]
  - Nausea [Unknown]
  - Paraesthesia [Unknown]
  - Panic attack [Unknown]
  - Crying [Unknown]
